FAERS Safety Report 4778939-7 (Version None)
Quarter: 2005Q3

REPORT INFORMATION
  Report Type: 
  Country: None (occurrence: None)
  Receive Date: 20050922
  Receipt Date: 20050913
  Transmission Date: 20060218
  Serious: Yes (Other)
  Sender: FDA-Public Use
  Company Number: B0394069A

PATIENT
  Age: 3 Year
  Sex: Male

DRUGS (3)
  1. FLOVENT [Suspect]
     Indication: ASTHMA
     Dosage: UNKNOWN,YEARS
     Route: 065
  2. ADVAIR HFA [Suspect]
     Indication: ASTHMA
     Dosage: UNK/ SEE DOSAGE TEXT/ UNKOWN
     Route: 065
  3. LEUKOTRIENE [Concomitant]

REACTIONS (7)
  - ASTHMA [None]
  - DRUG DOSE OMISSION [None]
  - HYPOGLYCAEMIA [None]
  - LOSS OF CONSCIOUSNESS [None]
  - MALAISE [None]
  - ORAL INTAKE REDUCED [None]
  - PYREXIA [None]
